FAERS Safety Report 7939179-3 (Version None)
Quarter: 2011Q4

REPORT INFORMATION
  Report Type: 
  Country: None (occurrence: None)
  Receive Date: 20111124
  Receipt Date: 20111114
  Transmission Date: 20120403
  Serious: Yes (Other)
  Sender: FDA-Public Use
  Company Number: CA-BRISTOL-MYERS SQUIBB COMPANY-16229346

PATIENT
  Age: 19 Month
  Sex: Female

DRUGS (7)
  1. CYCLOPHOSPHAMIDE [Suspect]
  2. METHOTREXATE [Suspect]
     Dosage: 1DF= 8 G/M2
  3. CISPLATIN [Suspect]
  4. VINCRISTINE [Suspect]
     Dosage: TWO DOSES
  5. ETOPOSIDE [Suspect]
  6. CARBOPLATIN [Suspect]
  7. THIOTEPA [Suspect]
     Dosage: 2 DOSES

REACTIONS (4)
  - IMMUNOSUPPRESSION [None]
  - DEAFNESS [None]
  - LEUKOENCEPHALOPATHY [None]
  - SEPSIS [None]
